FAERS Safety Report 7230244-5 (Version None)
Quarter: 2011Q1

REPORT INFORMATION
  Report Type: 
  Country: None (occurrence: None)
  Receive Date: 20110118
  Receipt Date: 20110106
  Transmission Date: 20110831
  Serious: Yes (Other)
  Sender: FDA-Public Use
  Company Number: US-PFIZER INC-2010133127

PATIENT
  Sex: Male

DRUGS (1)
  1. CHANTIX [Suspect]
     Indication: SMOKING CESSATION THERAPY
     Dosage: 1 MG, UNK
     Route: 048
     Dates: start: 20071101, end: 20080201

REACTIONS (5)
  - DEPRESSION [None]
  - SUICIDAL IDEATION [None]
  - MOOD SWINGS [None]
  - ANXIETY [None]
  - PARANOIA [None]
